FAERS Safety Report 9983138 (Version 2)
Quarter: 2014Q1

REPORT INFORMATION
  Report Type: Spontaneous
  Country: US (occurrence: US)
  Receive Date: 20140307
  Receipt Date: 20140318
  Transmission Date: 20141002
  Serious: Yes (Other)
  Sender: FDA-Public Use
  Company Number: US-PFIZER INC-2014065529

PATIENT
  Age: 57 Year
  Sex: Female
  Weight: 138.78 kg

DRUGS (20)
  1. CELEBREX [Suspect]
     Indication: OSTEOARTHRITIS
     Dosage: 200 MG, 1X/DAY
     Route: 048
  2. CELEBREX [Suspect]
     Indication: RHEUMATOID ARTHRITIS
  3. CELEBREX [Suspect]
     Indication: ARTHRALGIA
  4. NORVASC [Suspect]
     Indication: HYPERTENSION
     Dosage: 5 MG, 1X/DAY
     Route: 048
  5. EFFEXOR XR [Suspect]
     Indication: DEPRESSION
     Dosage: 150 MG, 1X/DAY
     Route: 048
  6. ADVAIR [Concomitant]
     Dosage: (FLUTICASONE PROPIONATE 100MG/ SALMETEROL 50 MG), 2X/DAY
  7. LASIX [Concomitant]
     Dosage: UNK
  8. XANAX [Concomitant]
     Dosage: AS NEEDED
  9. CLONIDINE [Concomitant]
     Dosage: UNK
  10. NEXIUM [Concomitant]
     Dosage: UNK
  11. TRAMADOL [Concomitant]
     Indication: PAIN
     Dosage: UNK
  12. VERAMYST [Concomitant]
     Dosage: 2X/DAY
  13. RESTORIL [Concomitant]
     Dosage: UNK
  14. ADVAIR DISKUS [Concomitant]
     Dosage: UNK
  15. FASLODEX [Concomitant]
     Dosage: UNK
  16. MECLIZINE [Concomitant]
     Dosage: UNK
  17. IMITREX [Concomitant]
     Dosage: UNK
  18. PRISTIQ [Concomitant]
     Dosage: UNK
  19. VITAMIN C [Concomitant]
     Dosage: UNK
  20. CALCIUM WITH D [Concomitant]
     Dosage: UNK

REACTIONS (2)
  - Breast cancer [Unknown]
  - Osteoporosis [Unknown]
